FAERS Safety Report 22378854 (Version 2)
Quarter: 2023Q2

REPORT INFORMATION
  Report Type: Other
  Country: US (occurrence: None)
  Receive Date: 20230529
  Receipt Date: 20230608
  Transmission Date: 20230722
  Serious: Yes (Hospitalization, Other)
  Sender: FDA-Public Use
  Company Number: US-ROCHE-3354558

PATIENT
  Age: 68 Year
  Sex: Male
  Weight: 67.192 kg

DRUGS (2)
  1. OCREVUS [Suspect]
     Active Substance: OCRELIZUMAB
     Indication: Progressive multiple sclerosis
     Dosage: 600 MG EVERY 6 MONTHS, DATE OF TREATMENT: AUG/2019, 19/MAY/2021, 19/NOV/2021, 11/MAY/2022, 09/NOV/20
     Route: 042
     Dates: start: 20210519
  2. AMPYRA [Concomitant]
     Active Substance: DALFAMPRIDINE

REACTIONS (6)
  - Balance disorder [Not Recovered/Not Resolved]
  - Fall [Unknown]
  - Gait disturbance [Not Recovered/Not Resolved]
  - Cerebrovascular accident [Recovered/Resolved]
  - Urinary tract infection [Not Recovered/Not Resolved]
  - Sepsis [Unknown]

NARRATIVE: CASE EVENT DATE: 20230512
